FAERS Safety Report 9102019 (Version 1)
Quarter: 2013Q1

REPORT INFORMATION
  Report Type: Spontaneous
  Country: US (occurrence: US)
  Receive Date: 20130218
  Receipt Date: 20130218
  Transmission Date: 20140127
  Serious: No
  Sender: FDA-Public Use
  Company Number: US-TEVA-386615USA

PATIENT
  Sex: Female

DRUGS (1)
  1. PROVIGIL [Suspect]

REACTIONS (2)
  - Infertility [Unknown]
  - Depression [Unknown]
